FAERS Safety Report 7117974-0 (Version None)
Quarter: 2010Q4

REPORT INFORMATION
  Report Type: 
  Country: None (occurrence: None)
  Receive Date: 20101118
  Receipt Date: 20101118
  Transmission Date: 20110411
  Serious: Yes (Hospitalization, Other)
  Sender: FDA-Public Use
  Company Number: None

PATIENT
  Sex: Female
  Weight: 29.4838 kg

DRUGS (1)
  1. GUANFACINE [Suspect]
     Indication: ATTENTION DEFICIT/HYPERACTIVITY DISORDER
     Dosage: 1 MG HS PO ; .5 MG QAM, Q4PM PO
     Route: 048
     Dates: start: 20100731, end: 20100907

REACTIONS (7)
  - BLOOD PRESSURE DECREASED [None]
  - EYE DISORDER [None]
  - FALL [None]
  - HEART RATE DECREASED [None]
  - LOSS OF CONSCIOUSNESS [None]
  - PALLOR [None]
  - VISION BLURRED [None]
